FAERS Safety Report 4303610-5 (Version None)
Quarter: 2004Q1

REPORT INFORMATION
  Report Type: 
  Country: None (occurrence: None)
  Receive Date: 20040225
  Receipt Date: 20040219
  Transmission Date: 20041129
  Serious: Yes (Hospitalization)
  Sender: FDA-Public Use
  Company Number: FR-BRISTOL-MYERS SQUIBB COMPANY-12511176

PATIENT
  Age: 72 Year
  Sex: Female

DRUGS (11)
  1. APROVEL TABS [Suspect]
     Indication: HYPERTENSION
     Dosage: TABLETS
     Route: 048
     Dates: end: 20031201
  2. FUROSEMIDE [Suspect]
     Indication: HYPERTENSION
     Route: 048
     Dates: end: 20031203
  3. NEURONTIN [Suspect]
     Route: 048
     Dates: end: 20031205
  4. CONTRAMAL [Suspect]
     Route: 048
     Dates: end: 20031201
  5. EFFEXOR [Suspect]
     Indication: DYSTHYMIC DISORDER
     Route: 048
     Dates: end: 20031201
  6. AMLOR [Concomitant]
  7. GLUCOR [Concomitant]
     Dates: end: 20031203
  8. OGAST [Concomitant]
     Dates: end: 20031201
  9. DIFRAREL [Concomitant]
     Dates: end: 20031202
  10. DAFALGAN [Concomitant]
     Dates: end: 20031202
  11. VASTAREL [Concomitant]

REACTIONS (3)
  - FALL [None]
  - HEADACHE [None]
  - VERTIGO [None]
